FAERS Safety Report 18473493 (Version 4)
Quarter: 2022Q2

REPORT INFORMATION
  Report Type: Spontaneous
  Country: US (occurrence: US)
  Receive Date: 20201106
  Receipt Date: 20220627
  Transmission Date: 20220721
  Serious: Yes (Other)
  Sender: FDA-Public Use
  Company Number: US-PFIZER INC-2020431551

PATIENT
  Age: 30 Year
  Sex: Female

DRUGS (1)
  1. XELJANZ [Suspect]
     Active Substance: TOFACITINIB CITRATE
     Dosage: 5 MG, 2X/DAY

REACTIONS (5)
  - Syncope [Unknown]
  - Circulatory collapse [Unknown]
  - Cerebrovascular accident [Unknown]
  - Dizziness [Unknown]
  - Mass [Unknown]

NARRATIVE: CASE EVENT DATE: 19810101
